FAERS Safety Report 19435983 (Version 1)
Quarter: 2021Q2

REPORT INFORMATION
  Report Type: Spontaneous
  Country: US (occurrence: US)
  Receive Date: 20210618
  Receipt Date: 20210618
  Transmission Date: 20210717
  Serious: Yes (Hospitalization)
  Sender: FDA-Public Use
  Company Number: US-ACCORD-228471

PATIENT
  Age: 71 Year
  Sex: Female

DRUGS (2)
  1. OXYBUTYNIN/OXYBUTYNIN HYDROCHLORIDE [Suspect]
     Active Substance: OXYBUTYNIN
     Indication: HYPERTONIC BLADDER
     Dosage: EXTENDED?RELEASE ONCE DAILY
     Route: 048
  2. CARBIDOPA/LEVODOPA [Concomitant]
     Active Substance: CARBIDOPA\LEVODOPA
     Dosage: 192 MG, TWO CAPSULES EVERY FOUR HOURS

REACTIONS (3)
  - Medication error [Unknown]
  - Heat stroke [Recovered/Resolved]
  - Hyperthermia [Recovered/Resolved]
